FAERS Safety Report 17344345 (Version 1)
Quarter: 2020Q1

REPORT INFORMATION
  Report Type: Spontaneous
  Country: US (occurrence: US)
  Receive Date: 20200129
  Receipt Date: 20200129
  Transmission Date: 20200409
  Serious: No
  Sender: FDA-Public Use
  Company Number: US-ALLERGAN-1929953US

PATIENT
  Age: 51 Year
  Sex: Female

DRUGS (9)
  1. BOTOX [Suspect]
     Active Substance: ONABOTULINUMTOXINA
     Indication: MIGRAINE
     Dosage: 155 UNITS, SINGLE
     Dates: start: 20180713, end: 20180713
  2. SEVERAL UNIDENTIFIED INHALERS [Concomitant]
  3. OXYCODONE [Concomitant]
     Active Substance: OXYCODONE
  4. UNIDENTIFIED MUSCLE RELAXERS [Concomitant]
  5. UNIDENTIFIED MEDICATIONS FOR BLOOD PRESSURE [Concomitant]
     Indication: HYPERTENSION
  6. POTASSIUM SUPPLEMENT [Concomitant]
     Active Substance: POTASSIUM
  7. DURAPREP SKIN PREP [Concomitant]
     Indication: SURGICAL PRECONDITIONING
     Dosage: UNK
     Route: 061
     Dates: start: 20180713, end: 20180713
  8. PRILOSEC [Concomitant]
     Active Substance: OMEPRAZOLE MAGNESIUM
     Indication: GASTROOESOPHAGEAL REFLUX DISEASE
  9. OXYCONTIN [Concomitant]
     Active Substance: OXYCODONE HYDROCHLORIDE

REACTIONS (3)
  - Rash [Recovered/Resolved]
  - Skin lesion [Recovered/Resolved]
  - Blister [Recovered/Resolved]

NARRATIVE: CASE EVENT DATE: 20180714
